FAERS Safety Report 8768955 (Version 1)
Quarter: 2012Q4

REPORT INFORMATION
  Report Type: 
  Country: US (occurrence: US)
  Receive Date: 20120905
  Receipt Date: 20120905
  Transmission Date: 20130627
  Serious: No
  Sender: FDA-Public Use
  Company Number: US-BAYER-2012-090094

PATIENT
  Age: 26 Year
  Sex: Female

DRUGS (1)
  1. OCELLA [Suspect]
     Indication: HORMONE THERAPY

REACTIONS (7)
  - Mood swings [None]
  - Feeling abnormal [None]
  - Fluid retention [None]
  - Abdominal distension [None]
  - Breast tenderness [None]
  - Pelvic pain [None]
  - Adverse event [None]
